FAERS Safety Report 5385174-0 (Version None)
Quarter: 2007Q3

REPORT INFORMATION
  Report Type: 
  Country: None (occurrence: None)
  Receive Date: 20070709
  Receipt Date: 20070627
  Transmission Date: 20080115
  Serious: Yes (Other)
  Sender: FDA-Public Use
  Company Number: 2007SP013012

PATIENT
  Age: 21 Year
  Sex: Female

DRUGS (2)
  1. NASONEX [Suspect]
     Indication: RHINITIS ALLERGIC
     Dosage: 50 MCG; PRN
     Dates: start: 20060728, end: 20060930
  2. CERAZETTE (CON.) [Concomitant]

REACTIONS (2)
  - ANOSMIA [None]
  - HYPOSMIA [None]
